FAERS Safety Report 21824414 (Version 1)
Quarter: 2023Q1

REPORT INFORMATION
  Report Type: Spontaneous
  Country: NL (occurrence: NL)
  Receive Date: 20230105
  Receipt Date: 20230105
  Transmission Date: 20230418
  Serious: Yes (Other)
  Sender: FDA-Public Use
  Company Number: None

PATIENT
  Sex: Male
  Weight: 96 kg

DRUGS (4)
  1. CARBIDOPA\LEVODOPA [Interacting]
     Active Substance: CARBIDOPA\LEVODOPA
     Indication: Parkinson^s disease
     Dosage: TABLET, 100/25 MG (MILLIGRAM)
     Route: 065
  2. METOPROLOL [Interacting]
     Active Substance: METOPROLOL
     Indication: Arrhythmia
     Dosage: 200 MILLIGRAM, QD (1 PIECE PER DAY)
     Route: 065
     Dates: start: 20220701
  3. PRAMIPEXOLE [Concomitant]
     Active Substance: PRAMIPEXOLE
     Dosage: RETARD 0.26 MILLIGRAM (3 PIECES/DAY)
     Route: 065
  4. METHOTREXATE (METHOTREXATE SODIUM) [Concomitant]
     Active Substance: METHOTREXATE SODIUM
     Dosage: INJECTION FLUID, 2.5 MG/ML
     Route: 065

REACTIONS (4)
  - Erectile dysfunction [Recovered/Resolved]
  - Gait inability [Unknown]
  - Drug titration error [Unknown]
  - Drug interaction [Unknown]
